FAERS Safety Report 15577676 (Version 2)
Quarter: 2018Q4

REPORT INFORMATION
  Report Type: Report from Study
  Country: FR (occurrence: FR)
  Receive Date: 20181102
  Receipt Date: 20181120
  Transmission Date: 20190205
  Serious: Yes (Hospitalization)
  Sender: FDA-Public Use
  Company Number: FR-ROCHE-2207916

PATIENT
  Age: 69 Year
  Sex: Female
  Weight: 63 kg

DRUGS (4)
  1. OBINUTUZUMAB. [Suspect]
     Active Substance: OBINUTUZUMAB
     Indication: LYMPHOMA
  2. ATEZOLIZUMAB. [Suspect]
     Active Substance: ATEZOLIZUMAB
     Indication: LYMPHOMA
     Dosage: DATE OF LAST DOSE PRIOR TO SERIOUS ADVERSE EVENT (SAE): 23/OCT/2018?LAST DOSE PRIOR TO SERIOUS ADVER
     Route: 042
     Dates: start: 20181023
  3. ATEZOLIZUMAB. [Suspect]
     Active Substance: ATEZOLIZUMAB
     Indication: LYMPHOMA
  4. OBINUTUZUMAB. [Suspect]
     Active Substance: OBINUTUZUMAB
     Indication: LYMPHOMA
     Dosage: DATE OF LAST DOSE PRIOR TO SERIOUS ADVERSE EVENT (SAE): 22/OCT/2018?LAST DOSE PRIOR TO SERIOUS ADVER
     Route: 042
     Dates: start: 20181022

REACTIONS (2)
  - Pneumonia [Recovered/Resolved with Sequelae]
  - Hyperthermia [Unknown]

NARRATIVE: CASE EVENT DATE: 20181029
